FAERS Safety Report 16458769 (Version 1)
Quarter: 2019Q2

REPORT INFORMATION
  Report Type: Spontaneous
  Country: US (occurrence: US)
  Receive Date: 20190620
  Receipt Date: 20190620
  Transmission Date: 20190711
  Serious: No
  Sender: FDA-Public Use
  Company Number: US-THERAPEUTICSMD-2019TMD00767

PATIENT
  Age: 58 Year
  Sex: Female
  Weight: 104.31 kg

DRUGS (5)
  1. FLONASE [Concomitant]
     Active Substance: FLUTICASONE PROPIONATE
  2. ZYRTEC [Concomitant]
     Active Substance: CETIRIZINE HYDROCHLORIDE
  3. LOSARTAN. [Concomitant]
     Active Substance: LOSARTAN
  4. IMVEXXY [Suspect]
     Active Substance: ESTRADIOL
     Indication: VULVOVAGINAL DISCOMFORT
     Dosage: 4 ?G, 2X/WEEK AT BEDTIME ON THURSDAY AND SUNDAY
     Route: 067
     Dates: start: 201812
  5. QVAR [Concomitant]
     Active Substance: BECLOMETHASONE DIPROPIONATE

REACTIONS (4)
  - Off label use [Not Recovered/Not Resolved]
  - Drug ineffective for unapproved indication [Not Recovered/Not Resolved]
  - Vulvovaginal discomfort [Not Recovered/Not Resolved]
  - Intentional dose omission [Not Recovered/Not Resolved]

NARRATIVE: CASE EVENT DATE: 201812
